FAERS Safety Report 11351252 (Version 1)
Quarter: 2015Q3

REPORT INFORMATION
  Report Type: Spontaneous
  Country: US (occurrence: US)
  Receive Date: 20150807
  Receipt Date: 20150807
  Transmission Date: 20151125
  Serious: No
  Sender: FDA-Public Use
  Company Number: US-JNJFOC-20141020838

PATIENT
  Age: 58 Year
  Sex: Female
  Weight: 81.65 kg

DRUGS (5)
  1. ANTI-CHOLESTEROL [Concomitant]
     Indication: BLOOD CHOLESTEROL INCREASED
     Route: 065
  2. WOMENS ROGAINE [Suspect]
     Active Substance: MINOXIDIL
     Route: 061
  3. MULTIVITAMINS [Concomitant]
     Active Substance: VITAMINS
     Indication: ROUTINE HEALTH MAINTENANCE
     Dosage: YEARS, UNKNOWN
     Route: 065
  4. WOMENS ROGAINE [Suspect]
     Active Substance: MINOXIDIL
     Indication: HAIR GROWTH ABNORMAL
     Dosage: DROPPER FULL, ONE IN THE MORNING AND THEN ONE AT NIGHT
     Route: 061
     Dates: end: 20141027
  5. OTHER THERAPEUTIC DRUGS [Concomitant]
     Indication: SKIN DISORDER
     Route: 065

REACTIONS (1)
  - Rash [Unknown]
